FAERS Safety Report 11080233 (Version 1)
Quarter: 2015Q2

REPORT INFORMATION
  Report Type: Spontaneous
  Country: US (occurrence: US)
  Receive Date: 20150430
  Receipt Date: 20150430
  Transmission Date: 20150821
  Serious: No
  Sender: FDA-Public Use
  Company Number: US-BAYER-2015-180698

PATIENT
  Age: 76 Year
  Sex: Female

DRUGS (1)
  1. CLARITIN-D 24 HOUR [Suspect]
     Active Substance: LORATADINE\PSEUDOEPHEDRINE SULFATE
     Indication: SEASONAL ALLERGY
     Dosage: 0.5 DF, QD
     Route: 048
     Dates: start: 20150419

REACTIONS (2)
  - Medication error [Unknown]
  - Medication error [Unknown]

NARRATIVE: CASE EVENT DATE: 20150419
